FAERS Safety Report 8208614-8 (Version None)
Quarter: 2012Q1

REPORT INFORMATION
  Report Type: 
  Country: None (occurrence: None)
  Receive Date: 20120314
  Receipt Date: 20120307
  Transmission Date: 20120608
  Serious: Yes (Hospitalization)
  Sender: FDA-Public Use
  Company Number: SE-GLAXOSMITHKLINE-B0788250A

PATIENT
  Sex: Female

DRUGS (18)
  1. BISOPROLOL FUMARATE [Concomitant]
  2. OXAZEPAM [Concomitant]
  3. SODIUM CHLORIDE [Concomitant]
  4. LEVOTHYROXINE SODIUM [Concomitant]
  5. DIMETIKON [Concomitant]
  6. ATARAX [Concomitant]
  7. ACETAMINOPHEN W/ CODEINE [Concomitant]
  8. FLUNITRAZEPAM [Concomitant]
  9. HYCAMTIN [Suspect]
     Indication: LUNG NEOPLASM
     Route: 048
     Dates: start: 20111101, end: 20111228
  10. COCILLANA-ETYFIN [Concomitant]
  11. POTASSIUM CHLORIDE [Concomitant]
  12. OMEPRAZOLE [Concomitant]
  13. PRAMIPEXOLE DIHYDROCHLORIDE [Concomitant]
  14. FUROSEMIDE [Concomitant]
  15. IMOVANE [Concomitant]
  16. IMODIUM [Concomitant]
  17. ACETAMINOPHEN [Concomitant]
  18. ONDANSETRON [Concomitant]

REACTIONS (3)
  - ENTEROCOLITIS [None]
  - ABDOMINAL PAIN [None]
  - NAUSEA [None]
